FAERS Safety Report 25900466 (Version 1)
Quarter: 2025Q4

REPORT INFORMATION
  Report Type: Spontaneous
  Country: GB (occurrence: GB)
  Receive Date: 20251009
  Receipt Date: 20251009
  Transmission Date: 20260117
  Serious: Yes (Other)
  Sender: BAYER HEALTHCARE PHARMACEUTICALS INC.
  Company Number: None

PATIENT

DRUGS (2)
  1. CIPROFLOXACIN [Suspect]
     Active Substance: CIPROFLOXACIN
     Indication: Infection
     Dosage: 500 MG, BID
     Route: 048
     Dates: start: 20250811, end: 20250813
  2. FUCIDIN [Concomitant]
     Active Substance: FUSIDATE SODIUM
     Indication: Infection
     Dates: start: 20250811, end: 20250924

REACTIONS (12)
  - Medication error [Unknown]
  - Myalgia [Not Recovered/Not Resolved]
  - Muscle spasms [Not Recovered/Not Resolved]
  - Brain fog [Not Recovered/Not Resolved]
  - Fatigue [Recovering/Resolving]
  - Musculoskeletal stiffness [Not Recovered/Not Resolved]
  - Dizziness [Recovering/Resolving]
  - Hypoaesthesia [Not Recovered/Not Resolved]
  - Paraesthesia [Recovering/Resolving]
  - Panic attack [Recovered/Resolved with Sequelae]
  - Pain [None]
  - Memory impairment [None]

NARRATIVE: CASE EVENT DATE: 20250813
